FAERS Safety Report 14775958 (Version 1)
Quarter: 2018Q2

REPORT INFORMATION
  Report Type: Spontaneous
  Country: SI (occurrence: SI)
  Receive Date: 20180418
  Receipt Date: 20180418
  Transmission Date: 20180711
  Serious: Yes (Death)
  Sender: FDA-Public Use
  Company Number: SI-ASTRAZENECA-2018SE46709

PATIENT
  Age: 55 Year
  Sex: Female

DRUGS (4)
  1. PERINDOPRIL [Concomitant]
     Active Substance: PERINDOPRIL
  2. IRESSA [Suspect]
     Active Substance: GEFITINIB
     Indication: NON-SMALL CELL LUNG CANCER
     Route: 048
     Dates: start: 201701, end: 201710
  3. TRAMADOL. [Concomitant]
     Active Substance: TRAMADOL
  4. DICLOFENAC [Concomitant]
     Active Substance: DICLOFENAC

REACTIONS (2)
  - Malignant neoplasm progression [Fatal]
  - Skin toxicity [Unknown]

NARRATIVE: CASE EVENT DATE: 201701
